FAERS Safety Report 12854469 (Version 3)
Quarter: 2016Q4

REPORT INFORMATION
  Report Type: Report from Study
  Country: CA (occurrence: CA)
  Receive Date: 20161017
  Receipt Date: 20161102
  Transmission Date: 20170207
  Serious: Yes (Other)
  Sender: FDA-Public Use
  Company Number: CA-GILEAD-2016-0236721

PATIENT
  Age: 81 Year
  Sex: Female

DRUGS (6)
  1. IBAVYR [Suspect]
     Active Substance: RIBAVIRIN
     Indication: CHRONIC HEPATITIS C
     Dosage: 400 MG, QD. EVERY MORNING
     Route: 048
     Dates: start: 20160818
  2. PROPAFENONE. [Concomitant]
     Active Substance: PROPAFENONE
     Indication: PRODUCT USED FOR UNKNOWN INDICATION
  3. IBAVYR [Suspect]
     Active Substance: RIBAVIRIN
     Dosage: 600 MG, QD. EVERY EVENING
     Route: 048
     Dates: start: 20160818
  4. ELTROXIN [Concomitant]
     Active Substance: LEVOTHYROXINE
     Indication: PRODUCT USED FOR UNKNOWN INDICATION
  5. LEDIPASVIR/SOFOSBUVIR [Suspect]
     Active Substance: LEDIPASVIR\SOFOSBUVIR
     Indication: CHRONIC HEPATITIS C
     Dosage: 1 DF, QD
     Route: 048
     Dates: start: 20160818
  6. WARFARIN [Concomitant]
     Active Substance: WARFARIN
     Indication: PRODUCT USED FOR UNKNOWN INDICATION

REACTIONS (8)
  - Circulatory collapse [Unknown]
  - Feeling hot [Unknown]
  - Myalgia [Unknown]
  - Drug dose omission [Recovered/Resolved]
  - Dizziness postural [Unknown]
  - Urinary tract infection [Recovered/Resolved]
  - Contusion [Unknown]
  - Fall [Recovered/Resolved]

NARRATIVE: CASE EVENT DATE: 20160927
